FAERS Safety Report 5496028-3 (Version None)
Quarter: 2007Q4

REPORT INFORMATION
  Report Type: 
  Country: None (occurrence: None)
  Receive Date: 20071025
  Receipt Date: 20070110
  Transmission Date: 20080405
  Serious: No
  Sender: FDA-Public Use
  Company Number: A0635176A

PATIENT
  Sex: Female

DRUGS (7)
  1. ADVAIR DISKUS 100/50 [Suspect]
     Indication: CHRONIC OBSTRUCTIVE PULMONARY DISEASE
     Route: 055
     Dates: start: 20061201
  2. SEREVENT [Suspect]
     Indication: ASTHMA
     Route: 055
     Dates: end: 20061201
  3. COMBIVENT [Concomitant]
  4. BUSPAR [Concomitant]
  5. VITAMINS [Concomitant]
  6. MENEST [Concomitant]
  7. VITAMIN E [Concomitant]

REACTIONS (2)
  - DYSPHONIA [None]
  - DYSPNOEA [None]
